FAERS Safety Report 16230349 (Version 1)
Quarter: 2019Q2

REPORT INFORMATION
  Report Type: Spontaneous
  Country: IT (occurrence: IT)
  Receive Date: 20190423
  Receipt Date: 20190423
  Transmission Date: 20190711
  Serious: Yes (Other)
  Sender: FDA-Public Use
  Company Number: IT-MYLANLABS-2019M1037700

PATIENT
  Age: 49 Year
  Sex: Female

DRUGS (2)
  1. FLURBIPROFEN. [Suspect]
     Active Substance: FLURBIPROFEN
     Indication: INFLUENZA
     Dosage: 1 DOSAGE FORM, TOTAL
     Route: 048
     Dates: start: 20181026, end: 20181026
  2. ASPIRINA [Concomitant]
     Active Substance: ASPIRIN
     Indication: INFLUENZA
     Dosage: 1 DOSAGE FORM
     Route: 048

REACTIONS (2)
  - Erythema [Recovered/Resolved]
  - Lip oedema [Recovered/Resolved]

NARRATIVE: CASE EVENT DATE: 20181026
